FAERS Safety Report 16123710 (Version 2)
Quarter: 2019Q3

REPORT INFORMATION
  Report Type: Report from Study
  Country: US (occurrence: US)
  Receive Date: 20190327
  Receipt Date: 20190806
  Transmission Date: 20191004
  Serious: Yes (Other)
  Sender: FDA-Public Use
  Company Number: US-JAZZ-2018-US-015289

PATIENT
  Age: 65 Year
  Sex: Female

DRUGS (39)
  1. SUMATRIPTAN. [Concomitant]
     Active Substance: SUMATRIPTAN
  2. XYREM [Suspect]
     Active Substance: SODIUM OXYBATE
     Indication: NARCOLEPSY
     Dosage: 2.25 G, BID
     Route: 048
     Dates: start: 201303, end: 201304
  3. ADDERALL [Concomitant]
     Active Substance: AMPHETAMINE ASPARTATE\AMPHETAMINE SULFATE\DEXTROAMPHETAMINE SACCHARATE\DEXTROAMPHETAMINE SULFATE
  4. IRON [Concomitant]
     Active Substance: IRON
  5. TESTOSTERONE CYPIONATE. [Concomitant]
     Active Substance: TESTOSTERONE CYPIONATE
  6. VIIBRYD [Concomitant]
     Active Substance: VILAZODONE HYDROCHLORIDE
  7. LYRICA [Concomitant]
     Active Substance: PREGABALIN
  8. CEFALEXIN [Concomitant]
     Active Substance: CEPHALEXIN
  9. HYDROCODONE BITARTRATE AND ACETAMINOPHEN [Concomitant]
     Active Substance: ACETAMINOPHEN\HYDROCODONE BITARTRATE
  10. SYNTHROID [Concomitant]
     Active Substance: LEVOTHYROXINE SODIUM
  11. NUVIGIL [Concomitant]
     Active Substance: ARMODAFINIL
  12. ALPRAZOLAM. [Concomitant]
     Active Substance: ALPRAZOLAM
  13. MOBIC [Concomitant]
     Active Substance: MELOXICAM
  14. ALENDRONATE SODIUM. [Concomitant]
     Active Substance: ALENDRONATE SODIUM
  15. PRAMIPEXOLE. [Concomitant]
     Active Substance: PRAMIPEXOLE
  16. EPIPEN [Concomitant]
     Active Substance: EPINEPHRINE
  17. EVISTA [Concomitant]
     Active Substance: RALOXIFENE HYDROCHLORIDE
  18. KEFLEX-C [Concomitant]
     Active Substance: CEPHALEXIN
  19. PROGESTERONE. [Concomitant]
     Active Substance: PROGESTERONE
  20. DEXTROAMPHETAMINE SULFATE. [Concomitant]
     Active Substance: DEXTROAMPHETAMINE SULFATE
  21. PERCOCET [Concomitant]
     Active Substance: ACETAMINOPHEN\OXYCODONE HYDROCHLORIDE
  22. HYDROCHLOROTHIAZIDE. [Concomitant]
     Active Substance: HYDROCHLOROTHIAZIDE
  23. METOPROLOL. [Concomitant]
     Active Substance: METOPROLOL
  24. LIDOCAINE. [Concomitant]
     Active Substance: LIDOCAINE
  25. POTASSIUM CL [Concomitant]
     Active Substance: POTASSIUM CHLORIDE
  26. TRIAMCINOLONE [Concomitant]
     Active Substance: TRIAMCINOLONE
  27. VALTREX [Concomitant]
     Active Substance: VALACYCLOVIR HYDROCHLORIDE
  28. CLONAZEPAM. [Concomitant]
     Active Substance: CLONAZEPAM
  29. XYREM [Suspect]
     Active Substance: SODIUM OXYBATE
     Dosage: DOSE ADJUSTMENT
     Route: 048
     Dates: start: 201304, end: 201604
  30. XYREM [Suspect]
     Active Substance: SODIUM OXYBATE
     Dosage: 3.75 G, BID
     Route: 048
     Dates: start: 201604, end: 2018
  31. CALCITRIOL. [Concomitant]
     Active Substance: CALCITRIOL
  32. CLOBETASOL [Concomitant]
     Active Substance: CLOBETASOL
  33. KETOCONAZOLE. [Concomitant]
     Active Substance: KETOCONAZOLE
  34. FERREX [Concomitant]
     Active Substance: FERRIC POLYSACCHARIDE COMPLEX
  35. LOSARTAN POTASSIUM. [Concomitant]
     Active Substance: LOSARTAN POTASSIUM
  36. ESTRACE [Concomitant]
     Active Substance: ESTRADIOL
  37. IBUPROFEN. [Concomitant]
     Active Substance: IBUPROFEN
  38. PRISTIQ EXTENDED-RELEASE [Concomitant]
     Active Substance: DESVENLAFAXINE SUCCINATE
  39. XANAX [Concomitant]
     Active Substance: ALPRAZOLAM

REACTIONS (2)
  - Scoliosis [Not Recovered/Not Resolved]
  - Blood calcium decreased [Unknown]

NARRATIVE: CASE EVENT DATE: 201809
